FAERS Safety Report 8222265-0 (Version None)
Quarter: 2012Q1

REPORT INFORMATION
  Report Type: 
  Country: None (occurrence: None)
  Receive Date: 20120320
  Receipt Date: 20120313
  Transmission Date: 20120608
  Serious: Yes (Other)
  Sender: FDA-Public Use
  Company Number: US-GLAXOSMITHKLINE-A0967666A

PATIENT
  Age: 79 Year
  Sex: Male

DRUGS (17)
  1. LEXAPRO [Concomitant]
  2. MECLIZINE [Concomitant]
  3. ULTRAM [Concomitant]
  4. THEOPHYLLINE [Concomitant]
  5. ASPIRIN [Concomitant]
  6. SEREVENT [Suspect]
     Indication: CHRONIC OBSTRUCTIVE PULMONARY DISEASE
     Dosage: 1PUFF TWICE PER DAY
     Route: 055
     Dates: start: 19970201
  7. FLOMAX [Concomitant]
  8. VENTOLIN [Concomitant]
  9. DUONEB [Concomitant]
  10. ZOCOR [Concomitant]
  11. LOPRESSOR [Concomitant]
  12. PEPCID [Concomitant]
  13. COZAAR [Concomitant]
  14. ELIGARD [Concomitant]
  15. NIACIN [Concomitant]
  16. KLOR-CON [Concomitant]
  17. TYLENOL W/ CODEINE [Concomitant]

REACTIONS (7)
  - BRONCHITIS [None]
  - PNEUMONIA [None]
  - PRODUCT QUALITY ISSUE [None]
  - VISUAL IMPAIRMENT [None]
  - DRY EYE [None]
  - WHEEZING [None]
  - DYSPNOEA [None]
